FAERS Safety Report 17662914 (Version 3)
Quarter: 2020Q2

REPORT INFORMATION
  Report Type: Report from Study
  Country: US (occurrence: US)
  Receive Date: 20200413
  Receipt Date: 20200624
  Transmission Date: 20200713
  Serious: Yes (Hospitalization, Other)
  Sender: FDA-Public Use
  Company Number: US-PFIZER INC-2020148872

PATIENT
  Age: 64 Year
  Sex: Female

DRUGS (3)
  1. TRIKAFTA [Suspect]
     Active Substance: ELEXACAFTOR\IVACAFTOR\TEZACAFTOR
     Dosage: UNK
  2. MEROPENEM. [Suspect]
     Active Substance: MEROPENEM
     Dosage: UNK
     Route: 055
  3. AZTREONAM LYSINE [Suspect]
     Active Substance: AZTREONAM LYSINE
     Indication: CYSTIC FIBROSIS
     Dosage: 75 MG, 3X/DAY, CYCLIC (28 DAYS ON, 28 DAYS OFF)
     Route: 055
     Dates: start: 201805

REACTIONS (9)
  - Headache [Recovered/Resolved with Sequelae]
  - Off label use [Unknown]
  - Bowel movement irregularity [Unknown]
  - Drug hypersensitivity [Recovered/Resolved with Sequelae]
  - Pruritus [Unknown]
  - Product use issue [Unknown]
  - Bronchitis [Recovered/Resolved with Sequelae]
  - Chest pain [Unknown]
  - Dyspnoea [Unknown]
